FAERS Safety Report 9262180 (Version 2)
Quarter: 2013Q2

REPORT INFORMATION
  Report Type: Spontaneous
  Country: US (occurrence: US)
  Receive Date: 20130430
  Receipt Date: 20130614
  Transmission Date: 20140414
  Serious: Yes (Hospitalization)
  Sender: FDA-Public Use
  Company Number: US-BIOGENIDEC-2013BI036764

PATIENT
  Sex: Female

DRUGS (2)
  1. AVONEX [Suspect]
     Indication: MULTIPLE SCLEROSIS
     Route: 030
     Dates: start: 19990301
  2. MEDICATIONS (NOS) [Concomitant]

REACTIONS (7)
  - Fall [Recovered/Resolved]
  - Cognitive disorder [Unknown]
  - Ataxia [Unknown]
  - Limb injury [Unknown]
  - Abasia [Unknown]
  - Blood glucose decreased [Unknown]
  - Drug dose omission [Unknown]
